FAERS Safety Report 24111280 (Version 3)
Quarter: 2025Q1

REPORT INFORMATION
  Report Type: Spontaneous
  Country: US (occurrence: US)
  Receive Date: 20240718
  Receipt Date: 20250224
  Transmission Date: 20250408
  Serious: No
  Sender: SANOFI AVENTIS
  Company Number: US-SA-SAC20240716001287

PATIENT
  Age: 78 Year
  Sex: Male

DRUGS (1)
  1. DUPIXENT [Suspect]
     Active Substance: DUPILUMAB
     Indication: Dermatitis atopic
     Dosage: 300 MG, QOW
     Route: 058

REACTIONS (9)
  - Rash macular [Unknown]
  - Skin fissures [Recovered/Resolved]
  - Pruritus [Recovered/Resolved]
  - Product dose omission issue [Recovered/Resolved]
  - Ocular hyperaemia [Unknown]
  - Pruritus [Unknown]
  - Eye pruritus [Unknown]
  - Off label use [Unknown]
  - Inappropriate schedule of product administration [Unknown]
